FAERS Safety Report 6366791-8 (Version None)
Quarter: 2009Q3

REPORT INFORMATION
  Report Type: 
  Country: None (occurrence: None)
  Receive Date: 20090921
  Receipt Date: 20090910
  Transmission Date: 20100115
  Serious: Yes (Congenital Anomaly, Other)
  Sender: FDA-Public Use
  Company Number: DK-BAYER-200932280GPV

PATIENT
  Age: 0 Hour
  Sex: Female
  Weight: 1.292 kg

DRUGS (1)
  1. MIRENA [Suspect]
     Indication: CONTRACEPTION
     Route: 065

REACTIONS (5)
  - ATRIAL SEPTAL DEFECT [None]
  - FAILURE TO THRIVE [None]
  - GROWTH RETARDATION [None]
  - PREMATURE BABY [None]
  - SMALL FOR DATES BABY [None]
